FAERS Safety Report 6183708-X (Version None)
Quarter: 2009Q2

REPORT INFORMATION
  Report Type: 
  Country: None (occurrence: None)
  Receive Date: 20090508
  Receipt Date: 20090424
  Transmission Date: 20091009
  Serious: No
  Sender: FDA-Public Use
  Company Number: US-EISAI INC.-E3810-02783-SPO-US

PATIENT
  Sex: Female

DRUGS (1)
  1. PARIET (RABEPRAZOLE) [Suspect]
     Dosage: UNKNOWN
     Dates: start: 20060101

REACTIONS (4)
  - CARPAL TUNNEL SYNDROME [None]
  - DYSPHAGIA [None]
  - HYPERSENSITIVITY [None]
  - TENOSYNOVITIS [None]
